FAERS Safety Report 22322662 (Version 1)
Quarter: 2023Q2

REPORT INFORMATION
  Report Type: Spontaneous
  Country: US (occurrence: None)
  Receive Date: 20230516
  Receipt Date: 20230516
  Transmission Date: 20230722
  Serious: No
  Sender: FDA-Public Use
  Company Number: AXS2022-172

PATIENT

DRUGS (5)
  1. SUNOSI [Suspect]
     Active Substance: SOLRIAMFETOL
     Indication: Narcolepsy
     Dosage: UNK
  2. UNSPECIFIED INGREDIENT [Concomitant]
     Active Substance: UNSPECIFIED INGREDIENT
  3. FLONASE ALLERGY RELIEF [Concomitant]
     Active Substance: FLUTICASONE PROPIONATE
     Indication: Product used for unknown indication
     Dosage: UNK
     Dates: start: 20220104
  4. ETODOLAC [Concomitant]
     Active Substance: ETODOLAC
     Indication: Product used for unknown indication
     Dosage: 400 MG
     Dates: start: 20220104
  5. ARMODAFINIL [Concomitant]
     Active Substance: ARMODAFINIL
     Indication: Product used for unknown indication

REACTIONS (1)
  - Drug ineffective [Unknown]
